FAERS Safety Report 5775822-5 (Version None)
Quarter: 2008Q2

REPORT INFORMATION
  Report Type: 
  Country: None (occurrence: None)
  Receive Date: 20080601
  Receipt Date: 20080319
  Transmission Date: 20081010
  Serious: No
  Sender: FDA-Public Use
  Company Number: US200803004862

PATIENT
  Age: 56 Year
  Sex: Female
  Weight: 92.1 kg

DRUGS (7)
  1. BYETTA [Suspect]
     Indication: TYPE 2 DIABETES MELLITUS
     Dosage: SEE IMAGE
     Route: 058
     Dates: start: 20070401, end: 20070501
  2. BYETTA [Suspect]
     Indication: TYPE 2 DIABETES MELLITUS
     Dosage: SEE IMAGE
     Route: 058
     Dates: start: 20070501, end: 20070601
  3. BYETTA [Suspect]
     Indication: TYPE 2 DIABETES MELLITUS
     Dosage: SEE IMAGE
     Route: 058
     Dates: start: 20070501, end: 20070601
  4. BYETTA [Suspect]
     Indication: TYPE 2 DIABETES MELLITUS
     Dosage: SEE IMAGE
     Route: 058
     Dates: start: 20070601, end: 20070901
  5. BYETTA [Suspect]
     Dosage: 5 UG, EACH MRONING, SUBCUTANEOUS
     Route: 058
     Dates: start: 20070901
  6. BYETTA [Suspect]
     Dosage: 10 UG, EACH EVENING, SUBCUTANEOUS
     Route: 058
     Dates: start: 20070901
  7. EXENATIDE PEN, DISPOSABLE DEVICE (EXENATIDE PEN) PEN,DISPOSABLE [Concomitant]

REACTIONS (6)
  - INJECTION SITE ERYTHEMA [None]
  - MALAISE [None]
  - NAUSEA [None]
  - SOMNOLENCE [None]
  - VOMITING [None]
  - WEIGHT DECREASED [None]
